FAERS Safety Report 18941168 (Version 2)
Quarter: 2021Q2

REPORT INFORMATION
  Report Type: Spontaneous
  Country: US (occurrence: US)
  Receive Date: 20210225
  Receipt Date: 20210428
  Transmission Date: 20210717
  Serious: Yes (Other)
  Sender: FDA-Public Use
  Company Number: US-PFIZER INC-2021167001

PATIENT
  Age: 66 Year
  Sex: Female

DRUGS (1)
  1. PREMARIN [Suspect]
     Active Substance: ESTROGENS, CONJUGATED
     Indication: FEMALE REPRODUCTIVE TRACT DISORDER

REACTIONS (3)
  - Urinary incontinence [Unknown]
  - Escherichia urinary tract infection [Unknown]
  - Cystitis [Unknown]
